FAERS Safety Report 4337344-8 (Version None)
Quarter: 2004Q2

REPORT INFORMATION
  Report Type: 
  Country: None (occurrence: None)
  Receive Date: 20040406
  Receipt Date: 20040107
  Transmission Date: 20050107
  Serious: Yes (Hospitalization)
  Sender: FDA-Public Use
  Company Number: 352102

PATIENT
  Age: 39 Year
  Sex: Male
  Weight: 49 kg

DRUGS (1)
  1. FUZEON [Suspect]
     Indication: HIV INFECTION
     Dosage: 90 MG 2 PER DAY SUBCUTANEOUS
     Route: 058
     Dates: start: 20031001, end: 20031116

REACTIONS (2)
  - HEADACHE [None]
  - MENINGITIS CRYPTOCOCCAL [None]
